FAERS Safety Report 9110011 (Version 1)
Quarter: 2013Q1

REPORT INFORMATION
  Report Type: Report from Study
  Country: CA (occurrence: CA)
  Receive Date: 20130222
  Receipt Date: 20130222
  Transmission Date: 20140127
  Serious: Yes (Death)
  Sender: FDA-Public Use
  Company Number: CA-ROCHE-1193686

PATIENT
  Sex: Female
  Weight: 51.7 kg

DRUGS (8)
  1. RITUXAN [Suspect]
     Indication: RHEUMATOID ARTHRITIS
     Route: 042
     Dates: start: 20090923, end: 20120713
  2. ADALAT [Concomitant]
     Indication: BLOOD PRESSURE
  3. PREDNISONE [Concomitant]
  4. ALENDRONATE [Concomitant]
  5. HYDROCHLOROTHIAZIDE [Concomitant]
  6. DIPHENHYDRAMINE HCL [Concomitant]
     Indication: PREMEDICATION
     Route: 048
     Dates: start: 20090923, end: 20120713
  7. ACETAMINOPHEN [Concomitant]
     Indication: PREMEDICATION
     Route: 048
     Dates: start: 20090923, end: 20120713
  8. METHYLPREDNISOLONE [Concomitant]
     Indication: PREMEDICATION
     Route: 042
     Dates: start: 20090923, end: 20120713

REACTIONS (1)
  - Death [Fatal]
